FAERS Safety Report 15035738 (Version 1)
Quarter: 2018Q2

REPORT INFORMATION
  Report Type: Spontaneous
  Country: PL (occurrence: PL)
  Receive Date: 20180620
  Receipt Date: 20180620
  Transmission Date: 20180711
  Serious: Yes (Other)
  Sender: FDA-Public Use
  Company Number: PL-PFIZER INC-2018242583

PATIENT
  Age: 35 Year
  Sex: Female

DRUGS (1)
  1. SALAZOPYRIN EN [Suspect]
     Active Substance: SULFASALAZINE
     Indication: POLYARTHRITIS
     Dosage: 500 MG, UNK; REGIMEN: 2X2;
     Route: 048
     Dates: start: 201611

REACTIONS (4)
  - Dermatitis bullous [Recovering/Resolving]
  - Vomiting [Recovering/Resolving]
  - Skin disorder [Recovering/Resolving]
  - Abdominal pain [Recovering/Resolving]
